FAERS Safety Report 18544830 (Version 1)
Quarter: 2020Q4

REPORT INFORMATION
  Report Type: Spontaneous
  Country: US (occurrence: US)
  Receive Date: 20201124
  Receipt Date: 20201124
  Transmission Date: 20210114
  Serious: Yes (Hospitalization)
  Sender: FDA-Public Use
  Company Number: None

PATIENT
  Age: 30 Year
  Sex: Male
  Weight: 74.25 kg

DRUGS (3)
  1. ALBUTEROL. [Concomitant]
     Active Substance: ALBUTEROL
  2. FLUTICASONE PROPIONATE AND SALMETEROL INHALATION POWDER 113 MCG/14 MCG [Suspect]
     Active Substance: FLUTICASONE PROPIONATE\SALMETEROL XINAFOATE
     Indication: ASTHMA
     Dosage: ?          QUANTITY:2 PUFF(S);?
     Route: 055
     Dates: start: 20201029, end: 20201122
  3. BUDESONIDE/FORMOTEROL (GENERIC SYMBICORT) [Concomitant]

REACTIONS (12)
  - Rash [None]
  - Dizziness [None]
  - Product substitution issue [None]
  - Fall [None]
  - Chest pain [None]
  - Night sweats [None]
  - Arrhythmia [None]
  - Pulmonary pain [None]
  - Panic attack [None]
  - Palpitations [None]
  - Hypoaesthesia [None]
  - Sleep disorder [None]

NARRATIVE: CASE EVENT DATE: 20201123
